FAERS Safety Report 13661602 (Version 1)
Quarter: 2017Q2

REPORT INFORMATION
  Report Type: Spontaneous
  Country: US (occurrence: US)
  Receive Date: 20170616
  Receipt Date: 20170616
  Transmission Date: 20170830
  Serious: No
  Sender: FDA-Public Use
  Company Number: US-US WORLDMEDS, LLC-USW201607-000525

PATIENT
  Sex: Female
  Weight: 94.8 kg

DRUGS (21)
  1. APOKYN [Suspect]
     Active Substance: APOMORPHINE HYDROCHLORIDE
     Indication: PARKINSON^S DISEASE
     Route: 058
  2. TIGAN [Suspect]
     Active Substance: TRIMETHOBENZAMIDE HYDROCHLORIDE
  3. NEXIUM [Concomitant]
     Active Substance: ESOMEPRAZOLE MAGNESIUM
  4. LINZESS [Concomitant]
     Active Substance: LINACLOTIDE
  5. ALORA [Concomitant]
     Active Substance: ESTRADIOL
  6. EXCEDRIN [Concomitant]
     Active Substance: ACETAMINOPHEN\ASPIRIN\CAFFEINE
  7. NASONEX [Concomitant]
     Active Substance: MOMETASONE FUROATE
  8. SINGULAIR [Concomitant]
     Active Substance: MONTELUKAST SODIUM
  9. DIPHENHIST [Concomitant]
     Active Substance: DIPHENHYDRAMINE HYDROCHLORIDE
  10. AZELASTINE [Concomitant]
     Active Substance: AZELASTINE
  11. TOPAMAX [Concomitant]
     Active Substance: TOPIRAMATE
  12. RIZATRIPTAN. [Concomitant]
     Active Substance: RIZATRIPTAN
  13. SEROQUEL [Concomitant]
     Active Substance: QUETIAPINE FUMARATE
  14. TRIAZOLAM. [Concomitant]
     Active Substance: TRIAZOLAM
  15. VENLAFAXINE [Concomitant]
     Active Substance: VENLAFAXINE HYDROCHLORIDE
  16. HYDROCODONE [Concomitant]
     Active Substance: HYDROCODONE
  17. NEUPRO [Concomitant]
     Active Substance: ROTIGOTINE
  18. AMANTADINE. [Concomitant]
     Active Substance: AMANTADINE HYDROCHLORIDE
  19. RYTARY [Concomitant]
     Active Substance: CARBIDOPA\LEVODOPA
  20. ATORVASTATIN [Concomitant]
     Active Substance: ATORVASTATIN
  21. QUDEXY XR [Concomitant]
     Active Substance: TOPIRAMATE

REACTIONS (7)
  - Parosmia [Not Recovered/Not Resolved]
  - Rhinorrhoea [Not Recovered/Not Resolved]
  - Amnesia [Not Recovered/Not Resolved]
  - Yawning [Not Recovered/Not Resolved]
  - Drug effect decreased [Unknown]
  - Nausea [Not Recovered/Not Resolved]
  - Hallucination, visual [Not Recovered/Not Resolved]
